FAERS Safety Report 5625776-7 (Version None)
Quarter: 2008Q1

REPORT INFORMATION
  Report Type: 
  Country: None (occurrence: None)
  Receive Date: 20080211
  Receipt Date: 20080130
  Transmission Date: 20080703
  Serious: Yes (Hospitalization)
  Sender: FDA-Public Use
  Company Number: 6040248

PATIENT
  Age: 70 Year
  Sex: Female

DRUGS (7)
  1. BISOPROLOL FUMARATE [Suspect]
     Indication: DRUG USE FOR UNKNOWN INDICATION
     Dosage: 1,25 MG EVERY OTHER DAY (EVERY OTHER DAY) ORAL; 7,5 MG (1 D) ORAL
     Route: 048
     Dates: start: 20050101, end: 20070601
  2. BISOPROLOL FUMARATE [Suspect]
     Indication: DRUG USE FOR UNKNOWN INDICATION
     Dosage: 1,25 MG EVERY OTHER DAY (EVERY OTHER DAY) ORAL; 7,5 MG (1 D) ORAL
     Route: 048
     Dates: start: 20050101
  3. BISOPROLOL FUMARATE [Suspect]
     Indication: DRUG USE FOR UNKNOWN INDICATION
     Dosage: 1,25 MG EVERY OTHER DAY (EVERY OTHER DAY) ORAL; 7,5 MG (1 D) ORAL
     Route: 048
     Dates: start: 20070601
  4. PREVISCAN (TABLET) (FLUINDIONE) [Suspect]
     Indication: DRUG USE FOR UNKNOWN INDICATION
     Dosage: 1/4 OF TAB OR 1/2 OF TAB (1/D) ORAL
     Route: 048
     Dates: start: 20020101, end: 20071029
  5. PREVISCAN (TABLET) (FLUINDIONE) [Suspect]
     Indication: DRUG USE FOR UNKNOWN INDICATION
     Dosage: 1/4 OF TAB OR 1/2 OF TAB (1/D) ORAL
     Route: 048
     Dates: start: 20020101
  6. DIGOXIN [Concomitant]
  7. ZESTRIL [Concomitant]

REACTIONS (11)
  - ABDOMINAL PAIN [None]
  - DRUG INTERACTION [None]
  - FALL [None]
  - FOOD INTERACTION [None]
  - GASTROINTESTINAL DISORDER [None]
  - HAEMATOMA [None]
  - HAEMORRHAGE [None]
  - INTERNATIONAL NORMALISED RATIO INCREASED [None]
  - INTRA-ABDOMINAL HAEMATOMA [None]
  - MALAISE [None]
  - SMALL INTESTINAL HAEMORRHAGE [None]
